FAERS Safety Report 6428056-5 (Version None)
Quarter: 2009Q4

REPORT INFORMATION
  Report Type: 
  Country: None (occurrence: None)
  Receive Date: 20091105
  Receipt Date: 20091030
  Transmission Date: 20100525
  Serious: Yes (Hospitalization)
  Sender: FDA-Public Use
  Company Number: BR-ROCHE-665553

PATIENT
  Sex: Female
  Weight: 91 kg

DRUGS (1)
  1. XENICAL [Suspect]
     Indication: OVERWEIGHT
     Dosage: RECEIVED AT LUNCH, OTHER INDICATION: EXCESSIVE FAT INGESTION
     Route: 048
     Dates: start: 20060101, end: 20090101

REACTIONS (1)
  - ENDOMETRIOSIS [None]
